FAERS Safety Report 7584462-7 (Version None)
Quarter: 2011Q2

REPORT INFORMATION
  Report Type: 
  Country: None (occurrence: None)
  Receive Date: 20110531
  Receipt Date: 20101223
  Transmission Date: 20111010
  Serious: Yes (Hospitalization, Other)
  Sender: FDA-Public Use
  Company Number: WAES 1012USA03815

PATIENT
  Age: 51 Year
  Sex: Female
  Weight: 88.4514 kg

DRUGS (7)
  1. JANUMET [Suspect]
     Indication: DIABETES MELLITUS
     Dosage: 1000MG/50 MG/PO
     Route: 048
     Dates: start: 20100101, end: 20100910
  2. TRIAMTERENE AND HYDROCHLOROTHIAZIDE [Concomitant]
  3. VERPAMIL HCL [Concomitant]
  4. GLIMEPIRIDE [Concomitant]
  5. LANTUS [Concomitant]
  6. PROVENTIL [Concomitant]
  7. PRAVASTATIN SODIUM [Concomitant]

REACTIONS (1)
  - DIARRHOEA [None]
